FAERS Safety Report 21754804 (Version 7)
Quarter: 2023Q2

REPORT INFORMATION
  Report Type: Spontaneous
  Country: US (occurrence: US)
  Receive Date: 20221220
  Receipt Date: 20230620
  Transmission Date: 20230721
  Serious: No
  Sender: FDA-Public Use
  Company Number: US-PFIZER INC-PV202200126270

PATIENT
  Age: 61 Year
  Sex: Female

DRUGS (2)
  1. IBRANCE [Suspect]
     Active Substance: PALBOCICLIB
     Dosage: 125 MG
  2. IBRANCE [Suspect]
     Active Substance: PALBOCICLIB
     Dosage: 125 MG, AT 6PM WITH EVENING MEAL

REACTIONS (11)
  - Fatigue [Not Recovered/Not Resolved]
  - Nausea [Unknown]
  - White blood cell count decreased [Unknown]
  - Alopecia [Not Recovered/Not Resolved]
  - Epistaxis [Unknown]
  - Retching [Unknown]
  - Duodenogastric reflux [Unknown]
  - Cough [Unknown]
  - Rhinorrhoea [Unknown]
  - Abdominal discomfort [Unknown]
  - Contusion [Unknown]

NARRATIVE: CASE EVENT DATE: 20221226
